FAERS Safety Report 25095197 (Version 1)
Quarter: 2025Q1

REPORT INFORMATION
  Report Type: Spontaneous
  Country: US (occurrence: US)
  Receive Date: 20250319
  Receipt Date: 20250319
  Transmission Date: 20250409
  Serious: No
  Sender: GALDERMA
  Company Number: US-GALDERMA-US2024016805

PATIENT

DRUGS (8)
  1. PROACTIV MD ADAPALENE ACNE TREATMENT [Suspect]
     Active Substance: ADAPALENE
     Indication: Acne
     Route: 061
     Dates: start: 20241031, end: 20241106
  2. PROACTIV MD ADAPALENE ACNE TREATMENT [Suspect]
     Active Substance: ADAPALENE
     Indication: Acne
  3. Proactiv MD Ultra Gentle Cleanser [Concomitant]
     Indication: Acne
     Route: 061
     Dates: start: 20241031, end: 20241106
  4. Proactiv MD Ultra Gentle Cleanser [Concomitant]
     Indication: Acne
  5. COSMETICS [Concomitant]
     Active Substance: COSMETICS
     Indication: Acne
     Route: 061
     Dates: start: 20241031, end: 20241106
  6. COSMETICS [Concomitant]
     Active Substance: COSMETICS
     Indication: Acne
  7. Proactiv Pore Cleansing Brush [Concomitant]
     Indication: Acne
     Route: 061
     Dates: start: 20241031, end: 20241106
  8. Proactiv Pore Cleansing Brush [Concomitant]
     Indication: Acne

REACTIONS (4)
  - Skin burning sensation [Not Recovered/Not Resolved]
  - Skin discomfort [Not Recovered/Not Resolved]
  - Dry skin [Not Recovered/Not Resolved]
  - Rash [Not Recovered/Not Resolved]

NARRATIVE: CASE EVENT DATE: 20241031
